FAERS Safety Report 5510018-3 (Version None)
Quarter: 2007Q4

REPORT INFORMATION
  Report Type: 
  Country: None (occurrence: None)
  Receive Date: 20071108
  Receipt Date: 20071024
  Transmission Date: 20080405
  Serious: No
  Sender: FDA-Public Use
  Company Number: US-ABBOTT-07P-163-0422217-00

PATIENT
  Sex: Female
  Weight: 79.45 kg

DRUGS (3)
  1. BIAXIN FILM TABS [Suspect]
     Indication: DRUG USE FOR UNKNOWN INDICATION
     Route: 048
     Dates: start: 19990101, end: 19990101
  2. LEVOTHYROXINE SODIUM [Concomitant]
     Indication: HYPOTHYROIDISM
     Route: 048
     Dates: start: 19650101
  3. PHENYTOIN [Concomitant]
     Indication: CONVULSION
     Route: 048

REACTIONS (2)
  - MOOD SWINGS [None]
  - URTICARIA [None]
